FAERS Safety Report 8832573 (Version 1)
Quarter: 2012Q4

REPORT INFORMATION
  Report Type: 
  Country: US (occurrence: US)
  Receive Date: 20121010
  Receipt Date: 20121010
  Transmission Date: 20130627
  Serious: No
  Sender: FDA-Public Use
  Company Number: US-PFIZER INC-2012248449

PATIENT
  Sex: Female

DRUGS (5)
  1. ADVIL [Suspect]
     Indication: ARTHRALGIA
     Dosage: 200 mg, 3x/day
     Route: 048
  2. ADVIL [Suspect]
     Dosage: 200 mg, 2x/day
     Route: 048
  3. ADVIL [Suspect]
     Dosage: 200 mg, UNK
     Route: 048
  4. ADVIL PM [Suspect]
     Indication: ARTHRALGIA
     Dosage: UNK, 1x/day
     Route: 048
     Dates: start: 2009
  5. ADVIL PM [Suspect]
     Indication: INSOMNIA

REACTIONS (1)
  - Rash erythematous [Not Recovered/Not Resolved]
